FAERS Safety Report 9640139 (Version 2)
Quarter: 2013Q4

REPORT INFORMATION
  Report Type: Spontaneous
  Country: US (occurrence: US)
  Receive Date: 20131023
  Receipt Date: 20131028
  Transmission Date: 20140711
  Serious: No
  Sender: FDA-Public Use
  Company Number: US-PFIZER INC-2013300236

PATIENT
  Age: 60 Year
  Sex: Male
  Weight: 77.1 kg

DRUGS (5)
  1. SILDENAFIL CITRATE [Suspect]
     Indication: ERECTILE DYSFUNCTION
     Dosage: 50 MG, AS NEEDED
     Route: 048
     Dates: start: 201306
  2. SILDENAFIL CITRATE [Suspect]
     Dosage: 180 MG (3 TABLETS OF 60 MG EACH), AS NEEDED
     Route: 048
     Dates: start: 2013
  3. PRAVASTATIN [Concomitant]
     Indication: BLOOD CHOLESTEROL INCREASED
     Dosage: 20 MG, DAILY
  4. NOVOLOG [Concomitant]
     Indication: TYPE 1 DIABETES MELLITUS
     Dosage: 10 IU, 2X/DAY
  5. NPH-INSULIN [Concomitant]
     Indication: TYPE 1 DIABETES MELLITUS
     Dosage: 15 IU, 2X/DAY

REACTIONS (1)
  - Drug ineffective [Unknown]
